FAERS Safety Report 6452798-9 (Version None)
Quarter: 2009Q4

REPORT INFORMATION
  Report Type: 
  Country: None (occurrence: None)
  Receive Date: 20091124
  Receipt Date: 20091112
  Transmission Date: 20100525
  Serious: Yes (Hospitalization)
  Sender: FDA-Public Use
  Company Number: GB-PFIZER INC-2009175965

PATIENT
  Age: 43 Year
  Sex: Female
  Weight: 163 kg

DRUGS (22)
  1. SPIRONOLACTONE [Suspect]
     Dosage: 50 MG, UNK
     Route: 048
     Dates: end: 20081013
  2. LISINOPRIL [Suspect]
     Route: 048
     Dates: end: 20081013
  3. IRBESARTAN [Suspect]
     Route: 048
     Dates: end: 20081013
  4. ACOMPLIA [Suspect]
     Indication: OBESITY
     Route: 048
     Dates: start: 20070629, end: 20081013
  5. ASPIRIN [Concomitant]
     Indication: CARDIAC DISORDER
     Dosage: 5 MG, UNK
     Route: 048
  6. ATENOLOL [Concomitant]
     Dosage: 50 MG, 1X/DAY
     Route: 048
  7. ATORVASTATIN [Concomitant]
     Dosage: 80 MG, 1X/DAY
     Route: 048
  8. CODEINE [Concomitant]
     Dosage: 120 MG, UNK
     Route: 048
  9. FUROSEMIDE [Concomitant]
     Dosage: 40 MG, 1X/DAY
     Route: 048
  10. NITROGLYCERIN [Concomitant]
     Dosage: 400 UG, UNK
     Route: 060
  11. ISOSORBIDE MONONITRATE [Concomitant]
     Dosage: 90 MG, UNK
     Route: 048
  12. ISPAGHULA HUSK [Concomitant]
     Route: 048
  13. LIDOCAINE HYDROCHLORIDE [Concomitant]
     Route: 061
  14. NITRAZEPAM [Concomitant]
     Dosage: 5 MG, UNK
     Route: 048
  15. OMEPRAZOLE [Concomitant]
     Dosage: 20 MG, UNK
     Route: 048
  16. PARACETAMOL [Concomitant]
     Dosage: 4 G, UNK
     Route: 048
  17. QUININE SULFATE [Concomitant]
     Dosage: 400 MG, UNK
     Route: 048
  18. TRIMETHOPRIM [Concomitant]
     Dosage: 10 MG, UNK
     Route: 048
  19. VESICARE [Concomitant]
     Dosage: 5 MG, 1X/DAY
     Route: 048
  20. BISOPROLOL [Concomitant]
  21. DILTIAZEM [Concomitant]
  22. OMACOR [Concomitant]
     Dosage: 1 DF, 1X/DAY

REACTIONS (14)
  - ATRIAL FIBRILLATION [None]
  - BACK PAIN [None]
  - DEHYDRATION [None]
  - DYSPEPSIA [None]
  - FEAR OF EATING [None]
  - GASTROOESOPHAGEAL REFLUX DISEASE [None]
  - HYPERTENSION [None]
  - NAUSEA [None]
  - OEDEMA [None]
  - OLIGURIA [None]
  - PYREXIA [None]
  - RECTAL HAEMORRHAGE [None]
  - RENAL FAILURE ACUTE [None]
  - WEIGHT INCREASED [None]
